FAERS Safety Report 5792094-6 (Version None)
Quarter: 2008Q2

REPORT INFORMATION
  Report Type: 
  Country: None (occurrence: None)
  Receive Date: 20080623
  Receipt Date: 20080606
  Transmission Date: 20081010
  Serious: Yes (Other)
  Sender: FDA-Public Use
  Company Number: 19546

PATIENT
  Age: 44 Year
  Sex: Female
  Weight: 45.9 kg

DRUGS (3)
  1. CARBOPLATIN [Suspect]
     Indication: OVARIAN CANCER
     Dosage: 350 MG IU
     Dates: start: 20080527, end: 20080527
  2. DOMPERIDONE [Concomitant]
  3. PALONOSETRON [Concomitant]

REACTIONS (4)
  - HEADACHE [None]
  - HOT FLUSH [None]
  - PARAESTHESIA [None]
  - RASH [None]
